FAERS Safety Report 10176153 (Version 2)
Quarter: 2014Q2

REPORT INFORMATION
  Report Type: Spontaneous
  Country: US (occurrence: US)
  Receive Date: 20140516
  Receipt Date: 20140626
  Transmission Date: 20141212
  Serious: Yes (Death, Life-Threatening, Hospitalization)
  Sender: FDA-Public Use
  Company Number: US-BAYER-2014-072715

PATIENT
  Age: 73 Year
  Sex: Female
  Weight: 82 kg

DRUGS (8)
  1. GADAVIST [Suspect]
     Indication: NUCLEAR MAGNETIC RESONANCE IMAGING SPINAL
     Dosage: 9 ML, ONCE
     Route: 042
     Dates: start: 20140512, end: 20140512
  2. ALBUTEROL [Concomitant]
     Dosage: 90/MCG/ACT, PRN
  3. ALLEGRA [Concomitant]
     Dosage: 180 MG, QD
  4. LISINOPRIL [Concomitant]
     Dosage: 20 MG, QD
  5. CALCIUM VIT D [Concomitant]
     Dosage: UNK UNK, QD
  6. VITAMIN C [Concomitant]
     Dosage: 500 MG, QD
  7. VITAMIN D [Concomitant]
     Dosage: 4000 UNITS, QD
  8. CENTRUM SILVER [Concomitant]
     Dosage: UNK UNK, QD

REACTIONS (5)
  - Anaphylactic reaction [None]
  - Nausea [None]
  - Respiratory distress [None]
  - Cardiac discomfort [None]
  - Death [Fatal]
